FAERS Safety Report 12190402 (Version 1)
Quarter: 2016Q1

REPORT INFORMATION
  Report Type: Spontaneous
  Country: US (occurrence: US)
  Receive Date: 20160318
  Receipt Date: 20160318
  Transmission Date: 20160526
  Serious: Yes (Other)
  Sender: FDA-Public Use
  Company Number: US-009507513-1603USA006908

PATIENT
  Age: 58 Year
  Sex: Female

DRUGS (3)
  1. BELSOMRA [Suspect]
     Active Substance: SUVOREXANT
     Indication: INSOMNIA
     Dosage: 10 MG, NIGHTLY/TOOK HALF OF 10 MG TABLET AT 22:00
     Route: 065
     Dates: start: 20160311
  2. PHENTERMINE. [Suspect]
     Active Substance: PHENTERMINE
     Indication: WEIGHT CONTROL
     Dosage: UNK
     Route: 065
     Dates: start: 2016
  3. BELSOMRA [Suspect]
     Active Substance: SUVOREXANT
     Dosage: THREE HOURS LATER, TOOK THE OTHER HALF OF THE TABLET
     Route: 065
     Dates: start: 20160312

REACTIONS (9)
  - Tachyphrenia [Unknown]
  - Decreased appetite [Unknown]
  - Memory impairment [Unknown]
  - Fatigue [Unknown]
  - Drug ineffective [Unknown]
  - Drug ineffective [Unknown]
  - Poor quality sleep [Unknown]
  - Insomnia [Unknown]
  - Eating disorder [Unknown]

NARRATIVE: CASE EVENT DATE: 2016
